FAERS Safety Report 4917703-2 (Version None)
Quarter: 2006Q1

REPORT INFORMATION
  Report Type: 
  Country: None (occurrence: None)
  Receive Date: 20060221
  Receipt Date: 20060116
  Transmission Date: 20060701
  Serious: Yes (Hospitalization)
  Sender: FDA-Public Use
  Company Number: JP-ROCHE-432736

PATIENT
  Age: 20 Year
  Sex: Male
  Weight: 78 kg

DRUGS (6)
  1. TAMIFLU [Suspect]
     Route: 048
     Dates: start: 20060113, end: 20060113
  2. CLARITHROMYCIN [Concomitant]
     Route: 048
     Dates: start: 20060113, end: 20060113
  3. OXATOWA [Concomitant]
     Route: 048
     Dates: start: 20060113, end: 20060113
  4. CETRAXATE HYDROCHLORIDE [Concomitant]
     Dosage: REPORTED AS: LACMARZE.
     Route: 048
     Dates: start: 20060113, end: 20060113
  5. NARCOTINE [Concomitant]
     Route: 048
     Dates: start: 20060113, end: 20060113
  6. CARBOCISTEINE [Concomitant]
     Route: 048
     Dates: start: 20060113, end: 20060113

REACTIONS (3)
  - ACUTE ABDOMEN [None]
  - GASTROINTESTINAL INFLAMMATION [None]
  - MECHANICAL ILEUS [None]
